FAERS Safety Report 6005909-3 (Version None)
Quarter: 2008Q4

REPORT INFORMATION
  Report Type: 
  Country: None (occurrence: None)
  Receive Date: 20081216
  Receipt Date: 20081216
  Transmission Date: 20090506
  Serious: Yes (Other)
  Sender: FDA-Public Use
  Company Number: None

PATIENT
  Age: 58 Year
  Sex: Female
  Weight: 76.2043 kg

DRUGS (1)
  1. ZOLPIDEM TARTRATE [Suspect]
     Indication: CIRCADIAN RHYTHM SLEEP DISORDER
     Dosage: 1/2 TO 1 TABLET BEDTIME PO
     Route: 048
     Dates: start: 20081113, end: 20081214

REACTIONS (3)
  - DRUG INEFFECTIVE [None]
  - PRODUCT QUALITY ISSUE [None]
  - THERAPEUTIC RESPONSE UNEXPECTED WITH DRUG SUBSTITUTION [None]
